FAERS Safety Report 8010737-3 (Version None)
Quarter: 2011Q4

REPORT INFORMATION
  Report Type: 
  Country: None (occurrence: None)
  Receive Date: 20111228
  Receipt Date: 20111216
  Transmission Date: 20120403
  Serious: Yes (Other)
  Sender: FDA-Public Use
  Company Number: JP-PFIZER INC-2011314089

PATIENT
  Age: 83 Year
  Sex: Female

DRUGS (5)
  1. CEFAZOLIN SODIUM [Suspect]
     Dosage: UNKNOWN
     Route: 048
  2. VANCOMYCIN [Suspect]
     Dosage: UNKNOWN
     Route: 042
  3. XYZAL [Suspect]
     Dosage: 2.5 MG/ DAY
     Route: 048
     Dates: start: 20111026, end: 20111029
  4. MAXIPIME [Suspect]
     Dosage: UNKNOWN
     Route: 042
  5. NICORANDIL [Suspect]
     Dosage: UNKNOWN
     Route: 048

REACTIONS (1)
  - ALTERED STATE OF CONSCIOUSNESS [None]
